FAERS Safety Report 9195866 (Version 1)
Quarter: 2013Q1

REPORT INFORMATION
  Report Type: Spontaneous
  Country: US (occurrence: None)
  Receive Date: 20120703
  Receipt Date: 20120703
  Transmission Date: 20140127
  Serious: No
  Sender: FDA-Public Use
  Company Number: PHEH2012US008520

PATIENT
  Age: 58 Year
  Sex: Female

DRUGS (7)
  1. GILENYA [Suspect]
     Route: 048
  2. CYMBALTA (DULOXTINE HYDROCHLORIDE) [Concomitant]
  3. NEUROTRONIN (GABAPENTIN) [Concomitant]
  4. BACLOFEN (BACLOFEN) [Concomitant]
  5. PREVACID  (LANSOPRAZOLE) [Concomitant]
  6. LEVOXYL (LEVOTHYROXINE SODIUM) [Concomitant]
  7. ADVIL (MEFENAMIC ACID) [Concomitant]

REACTIONS (2)
  - Arthralgia [None]
  - Back pain [None]
